FAERS Safety Report 8561607-3 (Version None)
Quarter: 2012Q3

REPORT INFORMATION
  Report Type: 
  Country: None (occurrence: None)
  Receive Date: 20120727
  Receipt Date: 20120727
  Transmission Date: 20120928
  Serious: Yes (Hospitalization)
  Sender: FDA-Public Use
  Company Number: None

PATIENT
  Age: 49 Year
  Sex: Female
  Weight: 95.2 kg

DRUGS (7)
  1. LOVENOX [Suspect]
     Indication: DEEP VEIN THROMBOSIS
     Dosage: 100 MG, Q12HRS, SQ RECENT RESTART WITH INCREASE
     Route: 058
  2. BUPRION [Concomitant]
  3. LOTRAN [Concomitant]
  4. PHENERGAN HCL [Concomitant]
  5. METFORMIN HYDROCHLORIDE [Concomitant]
  6. ALBUTEROL [Concomitant]
  7. WARFARIN SODIUM [Suspect]
     Indication: DEEP VEIN THROMBOSIS
     Dosage: 5 MG, DAILY, PO RECENT RESTART
     Route: 048

REACTIONS (3)
  - LOWER GASTROINTESTINAL HAEMORRHAGE [None]
  - RASH [None]
  - COLITIS [None]
